FAERS Safety Report 13143433 (Version 1)
Quarter: 2017Q1

REPORT INFORMATION
  Report Type: Spontaneous
  Country: US (occurrence: US)
  Receive Date: 20170124
  Receipt Date: 20170124
  Transmission Date: 20170428
  Serious: Yes (Other)
  Sender: FDA-Public Use
  Company Number: None

PATIENT
  Age: 76 Year
  Sex: Female
  Weight: 75.82 kg

DRUGS (6)
  1. LISINIPRIL 5MG [Concomitant]
     Active Substance: LISINOPRIL
  2. TRULICITY [Suspect]
     Active Substance: DULAGLUTIDE
     Indication: DIABETES MELLITUS
     Dosage: ?          QUANTITY:( 1? J M] 1AM?);?
     Dates: start: 20160920, end: 20160921
  3. FISH OIL WITH OMEGA 3 [Concomitant]
  4. LANTUS [Concomitant]
     Active Substance: INSULIN GLARGINE
  5. VITAMIN E [Concomitant]
     Active Substance: .ALPHA.-TOCOPHEROL
  6. POTASSIUM CITRATE. [Concomitant]
     Active Substance: POTASSIUM CITRATE

REACTIONS (2)
  - Pruritus [None]
  - Vomiting [None]

NARRATIVE: CASE EVENT DATE: 20160919
